FAERS Safety Report 16848339 (Version 28)
Quarter: 2022Q4

REPORT INFORMATION
  Report Type: Other
  Country: GB (occurrence: GB)
  Receive Date: 20190925
  Receipt Date: 20221201
  Transmission Date: 20230113
  Serious: Yes (Death, Hospitalization, Congenital Anomaly, Other)
  Sender: FDA-Public Use
  Company Number: GB-ACCORD-153836

PATIENT
  Age: 4 Month
  Sex: Female
  Weight: 3.43 kg

DRUGS (18)
  1. ABACAVIR\LAMIVUDINE [Suspect]
     Active Substance: ABACAVIR\LAMIVUDINE
     Indication: HIV infection
     Dosage: 1 DOSAGE FORM, QD (1 TABLET/CAPSULE)
     Route: 064
  2. ABACAVIR\LAMIVUDINE [Suspect]
     Active Substance: ABACAVIR\LAMIVUDINE
     Dosage: 1 DOSAGE FORM, QD
     Route: 064
  3. ABACAVIR\LAMIVUDINE [Suspect]
     Active Substance: ABACAVIR\LAMIVUDINE
     Dosage: 1 DOSAGE FORM, QD UNCOATED
     Route: 064
  4. LAMIVUDINE [Suspect]
     Active Substance: LAMIVUDINE
     Indication: HIV infection
     Dosage: 1 DOSAGE FORM, QD, FILM-COATED TABLET
     Route: 064
  5. LAMIVUDINE [Suspect]
     Active Substance: LAMIVUDINE
     Dosage: 1 DOSAGE FORM, QD, FILM-COATED TABLET
     Route: 064
  6. DARUNAVIR [Suspect]
     Active Substance: DARUNAVIR
     Indication: HIV infection
     Dosage: UNK (FORMULATION: FILM COATED TABLET)
     Route: 064
  7. DARUNAVIR [Suspect]
     Active Substance: DARUNAVIR
     Dosage: UNK (FORMULATION: FILM COATED TABLET)
     Route: 064
  8. DARUNAVIR [Suspect]
     Active Substance: DARUNAVIR
     Dosage: 1 DOSAGE FORM, 1 TABLET/CAPSULE
     Route: 064
  9. PREZCOBIX [Suspect]
     Active Substance: COBICISTAT\DARUNAVIR ETHANOLATE
     Indication: HIV infection
     Dosage: 1 DOSAGE FORM, QD (1 DOSAGE FORM, ONCE A DAY), UNCOATED TABLET
     Route: 064
  10. PREZCOBIX [Suspect]
     Active Substance: COBICISTAT\DARUNAVIR ETHANOLATE
     Dosage: 1 DOSAGE FORM, QD (1 DOSAGE FORM, ONCE A DAY), UNCOATED TABLET
     Route: 064
  11. RALTEGRAVIR POTASSIUM [Suspect]
     Active Substance: RALTEGRAVIR POTASSIUM
     Indication: Product used for unknown indication
     Dosage: UNK, 1200
     Route: 064
  12. RALTEGRAVIR POTASSIUM [Suspect]
     Active Substance: RALTEGRAVIR POTASSIUM
     Dosage: UNK
     Route: 064
  13. COBICISTAT\DARUNAVIR ETHANOLATE [Suspect]
     Active Substance: COBICISTAT\DARUNAVIR ETHANOLATE
     Indication: HIV infection
     Dosage: 1 DOSAGE FORM, QD (PARENT^S DOSE: 1 TABLET/CAPSULE)
     Route: 064
  14. COBICISTAT [Suspect]
     Active Substance: COBICISTAT
     Indication: HIV infection
     Dosage: 1 DOSAGE FORM, QD
     Route: 064
  15. COBICISTAT [Suspect]
     Active Substance: COBICISTAT
     Dosage: 1 DOSAGE FORM, 1 TABLET/CAPSULE
     Route: 064
  16. ABACAVIR SULFATE [Suspect]
     Active Substance: ABACAVIR SULFATE
     Indication: HIV infection
     Dosage: 1 DOSAGE FORM, QD
     Route: 064
  17. ABACAVIR SULFATE [Suspect]
     Active Substance: ABACAVIR SULFATE
     Dosage: UNK, TABLET
     Route: 064
  18. ABACAVIR SULFATE [Suspect]
     Active Substance: ABACAVIR SULFATE
     Dosage: 1 DOSAGE FORM, QD
     Route: 064

REACTIONS (9)
  - Brain injury [Fatal]
  - Foetal growth restriction [Fatal]
  - Gastroschisis [Fatal]
  - Foetal exposure during pregnancy [Fatal]
  - Foetal growth abnormality [Fatal]
  - Foetal death [Fatal]
  - Hydrocephalus [Fatal]
  - Congenital intestinal malformation [Fatal]
  - Spina bifida [Fatal]

NARRATIVE: CASE EVENT DATE: 20190107
